FAERS Safety Report 4961989-5 (Version None)
Quarter: 2006Q2

REPORT INFORMATION
  Report Type: 
  Country: None (occurrence: None)
  Receive Date: 20060404
  Receipt Date: 20051019
  Transmission Date: 20061013
  Serious: Yes (Hospitalization)
  Sender: FDA-Public Use
  Company Number: US-MERCK-0510USA08253

PATIENT
  Age: 54 Year
  Sex: Male
  Weight: 84 kg

DRUGS (24)
  1. VIOXX [Suspect]
     Indication: ARTHRITIS
     Route: 048
     Dates: start: 20000801, end: 20010401
  2. VIOXX [Suspect]
     Route: 048
     Dates: start: 20010301, end: 20050301
  3. VIOXX [Suspect]
     Route: 048
     Dates: start: 20000801, end: 20010719
  4. CELEBREX [Concomitant]
     Indication: OSTEOARTHRITIS
     Route: 048
     Dates: start: 20010301, end: 20050301
  5. CELEBREX [Concomitant]
     Indication: BACK PAIN
     Route: 048
     Dates: start: 20010301, end: 20050301
  6. COZAAR [Concomitant]
     Indication: HYPERTENSION
     Route: 048
  7. AVAPRO [Concomitant]
     Indication: HYPERTENSION
     Route: 065
  8. CARDIZEM [Concomitant]
     Indication: BLOOD PRESSURE
     Route: 065
     Dates: end: 20050901
  9. LASIX [Concomitant]
     Route: 065
     Dates: end: 20010119
  10. HYDRODIURIL [Concomitant]
     Indication: BLOOD PRESSURE
     Route: 065
     Dates: end: 20050701
  11. ASPIRIN [Concomitant]
     Route: 065
     Dates: start: 19900101
  12. PLAVIX [Concomitant]
     Route: 065
     Dates: end: 20010119
  13. ZOCOR [Concomitant]
     Route: 048
  14. PRAVACHOL [Concomitant]
     Route: 065
  15. ADVIL [Concomitant]
     Route: 065
  16. RIFAMPIN [Concomitant]
     Route: 065
     Dates: start: 20010119
  17. PAMELOR [Concomitant]
     Route: 065
     Dates: start: 20010101
  18. ZOLOFT [Concomitant]
     Route: 065
  19. LEXAPRO [Concomitant]
     Route: 065
  20. VALIUM [Concomitant]
     Route: 065
  21. DEPAKOTE [Concomitant]
     Route: 065
  22. PREVACID [Concomitant]
     Route: 065
     Dates: start: 20010301
  23. OMEPRAZOLE [Concomitant]
     Route: 065
     Dates: start: 20010301
  24. [THERAPY UNSPECIFIED] [Concomitant]
     Route: 065
     Dates: start: 20010301

REACTIONS (34)
  - ANAEMIA [None]
  - ANXIETY [None]
  - AORTIC VALVE INCOMPETENCE [None]
  - AORTIC VALVE SCLEROSIS [None]
  - BACK PAIN [None]
  - BENIGN PROSTATIC HYPERPLASIA [None]
  - BLOOD POTASSIUM INCREASED [None]
  - CEREBROVASCULAR ACCIDENT [None]
  - DEPRESSION [None]
  - DYSPEPSIA [None]
  - EYE HAEMORRHAGE [None]
  - GASTROINTESTINAL HAEMORRHAGE [None]
  - GASTROOESOPHAGEAL REFLUX DISEASE [None]
  - HAEMATOCHEZIA [None]
  - HYPERKALAEMIA [None]
  - HYPERLIPIDAEMIA [None]
  - INTERVERTEBRAL DISC PROTRUSION [None]
  - ISCHAEMIC STROKE [None]
  - MITRAL VALVE CALCIFICATION [None]
  - MITRAL VALVE INCOMPETENCE [None]
  - MOOD SWINGS [None]
  - MUSCLE SPASMS [None]
  - MYELOPROLIFERATIVE DISORDER [None]
  - OESOPHAGITIS [None]
  - PAIN [None]
  - PARAESTHESIA [None]
  - PLATELET COUNT INCREASED [None]
  - RENAL DISORDER [None]
  - SEROMA [None]
  - SPINAL COLUMN STENOSIS [None]
  - THROMBOCYTHAEMIA [None]
  - TRANSIENT ISCHAEMIC ATTACK [None]
  - TRICUSPID VALVE INCOMPETENCE [None]
  - WOUND INFECTION STAPHYLOCOCCAL [None]
